FAERS Safety Report 16275500 (Version 2)
Quarter: 2019Q3

REPORT INFORMATION
  Report Type: Other
  Country: US (occurrence: US)
  Receive Date: 20190506
  Receipt Date: 20190711
  Transmission Date: 20191004
  Serious: Yes (Other)
  Sender: FDA-Public Use
  Company Number: US-BIOVITRUM-2019US0963

PATIENT
  Sex: Female

DRUGS (1)
  1. KINERET [Suspect]
     Active Substance: ANAKINRA
     Route: 058
     Dates: start: 201903

REACTIONS (4)
  - Unevaluable event [Unknown]
  - Syncope [Unknown]
  - Dizziness [Unknown]
  - Vomiting [Unknown]
